FAERS Safety Report 15715754 (Version 1)
Quarter: 2018Q4

REPORT INFORMATION
  Report Type: Report from Study
  Country: FR (occurrence: FR)
  Receive Date: 20181212
  Receipt Date: 20181212
  Transmission Date: 20190205
  Serious: Yes (Other)
  Sender: FDA-Public Use
  Company Number: FR-MYLANLABS-2018M1090366

PATIENT
  Age: 1 Year
  Sex: Male
  Weight: 10.4 kg

DRUGS (8)
  1. PROBENECID. [Concomitant]
     Active Substance: PROBENECID
     Indication: NEPHROPATHY TOXIC
     Dosage: 2 G/1.73 M2 GIVEN 3 HOURS PRIOR TO THE CIDOFOVIR INFUSION.
     Route: 048
  2. GANCICLOVIR. [Concomitant]
     Active Substance: GANCICLOVIR
     Indication: ANTIVIRAL TREATMENT
     Route: 065
  3. PROBENECID. [Concomitant]
     Active Substance: PROBENECID
     Dosage: 1 G/1.73M2 DOSES AT 2 HOURS AND 8 HOURS AFTER THE INFUSION.
     Route: 048
  4. CIDOFOVIR. [Suspect]
     Active Substance: CIDOFOVIR
     Indication: ADENOVIRUS INFECTION
     Dosage: 5MG/KG OF BODYWEIGHT AS 1 HOUR INFUSIONS AT DAY 1, DAY 8 AND THEN EVERY 2WEEKS; 2 INFUSIONS WERE ...
     Route: 041
  5. VALACICLOVIR [Concomitant]
     Active Substance: VALACYCLOVIR HYDROCHLORIDE
     Indication: ANTIVIRAL TREATMENT
     Route: 065
  6. CIDOFOVIR. [Suspect]
     Active Substance: CIDOFOVIR
     Indication: CYTOMEGALOVIRUS INFECTION
  7. NORMAL SALINE [Concomitant]
     Active Substance: SODIUM CHLORIDE
     Indication: NEPHROPATHY TOXIC
     Dosage: 1L/1.73M2 AN HOUR PRIOR TO CIDOFOVIR INFUSION.
     Route: 041
  8. NORMAL SALINE [Concomitant]
     Active Substance: SODIUM CHLORIDE
     Dosage: 1L/1.73M2 OVER 3 HOURS AFTER CIDOFOVIR INFUSION.
     Route: 041

REACTIONS (3)
  - Off label use [Unknown]
  - Treatment failure [Unknown]
  - Renal tubular disorder [Unknown]
